FAERS Safety Report 6258724-X (Version None)
Quarter: 2009Q3

REPORT INFORMATION
  Report Type: 
  Country: None (occurrence: None)
  Receive Date: 20090707
  Receipt Date: 20090630
  Transmission Date: 20100115
  Serious: Yes (Life-Threatening)
  Sender: FDA-Public Use
  Company Number: B0566577A

PATIENT
  Sex: Male

DRUGS (11)
  1. ARTIST [Suspect]
     Indication: CARDIOMYOPATHY
     Dosage: 7.5MG PER DAY
     Route: 048
     Dates: start: 20040101, end: 20090301
  2. CIBENOL [Suspect]
     Route: 048
     Dates: start: 20040101, end: 20090301
  3. MAGNESIUM OXIDE [Concomitant]
     Route: 065
  4. RENIVACE [Concomitant]
  5. ASPIRIN [Concomitant]
  6. ALDACTONE [Concomitant]
     Dates: end: 20090301
  7. DIART [Concomitant]
     Dates: end: 20090301
  8. ZYLORIC [Concomitant]
     Dates: end: 20090301
  9. MEILAX [Concomitant]
     Dates: end: 20090301
  10. LIPITOR [Concomitant]
     Dates: end: 20090301
  11. FRANDOL [Concomitant]
     Dates: start: 20010101, end: 20090301

REACTIONS (5)
  - BUNDLE BRANCH BLOCK LEFT [None]
  - CARDIAC ARREST [None]
  - CARDIOGENIC SHOCK [None]
  - VENTRICULAR FIBRILLATION [None]
  - VENTRICULAR TACHYCARDIA [None]
